FAERS Safety Report 4360014-7 (Version None)
Quarter: 2004Q2

REPORT INFORMATION
  Report Type: 
  Country: None (occurrence: None)
  Receive Date: 20040518
  Receipt Date: 20040518
  Transmission Date: 20050107
  Serious: Yes (Other)
  Sender: FDA-Public Use
  Company Number: None

PATIENT
  Age: 30 Year
  Sex: Female
  Weight: 71.6683 kg

DRUGS (1)
  1. VISTARIL [Suspect]
     Indication: ANXIETY
     Dosage: 1 EVERY 6 HO

REACTIONS (2)
  - BURNS FIRST DEGREE [None]
  - BURNS SECOND DEGREE [None]
